FAERS Safety Report 17169596 (Version 3)
Quarter: 2020Q1

REPORT INFORMATION
  Report Type: Spontaneous
  Country: US (occurrence: US)
  Receive Date: 20191218
  Receipt Date: 20200114
  Transmission Date: 20200409
  Serious: Yes (Hospitalization)
  Sender: FDA-Public Use
  Company Number: US-VERTEX PHARMACEUTICALS-2019-012977

PATIENT
  Age: 22 Year
  Sex: Male

DRUGS (19)
  1. INSULIN [Concomitant]
     Active Substance: INSULIN NOS
  2. SYMDEKO [Suspect]
     Active Substance: IVACAFTOR\TEZACAFTOR
     Indication: CYSTIC FIBROSIS
     Dosage: 100 MG TEZACAFTOR/150 MG IVACAFTOR AND 150 MG IVACAFTOR, TWICE A WEEK
     Route: 048
     Dates: start: 201905
  3. MINOCYCLINE [Concomitant]
     Active Substance: MINOCYCLINE HYDROCHLORIDE
     Indication: NOCARDIOSIS
     Dosage: 100 MG, BID
     Dates: start: 201910
  4. XOLAIR [Concomitant]
     Active Substance: OMALIZUMAB
     Dosage: 375 MG, EVERY 2 WEEKS
  5. FLONASE [Concomitant]
     Active Substance: FLUTICASONE PROPIONATE
  6. VITAMIN D [COLECALCIFEROL] [Concomitant]
     Active Substance: CHOLECALCIFEROL
  7. HYPERSAL [Concomitant]
     Active Substance: SODIUM CHLORIDE
  8. ALBUTEROL [SALBUTAMOL] [Concomitant]
     Active Substance: ALBUTEROL
  9. OMEPRAZOLE. [Concomitant]
     Active Substance: OMEPRAZOLE
  10. HYDROXYZINE [Concomitant]
     Active Substance: HYDROXYZINE HYDROCHLORIDE
  11. TOBI [Concomitant]
     Active Substance: TOBRAMYCIN
  12. ADVAIR HFA [Concomitant]
     Active Substance: FLUTICASONE PROPIONATE\SALMETEROL XINAFOATE
  13. PREDNISONE. [Concomitant]
     Active Substance: PREDNISONE
     Dosage: 15 MG, QD
  14. ITRACONAZOLE EG [Concomitant]
     Active Substance: ITRACONAZOLE
     Dosage: UNK, BID
  15. PULMOZYME [Concomitant]
     Active Substance: DORNASE ALFA
  16. CAYSTON [Concomitant]
     Active Substance: AZTREONAM
  17. CREON [Concomitant]
     Active Substance: PANCRELIPASE AMYLASE\PANCRELIPASE LIPASE\PANCRELIPASE PROTEASE
  18. FLUOXETINE [Concomitant]
     Active Substance: FLUOXETINE HYDROCHLORIDE
  19. LORATADINE. [Concomitant]
     Active Substance: LORATADINE

REACTIONS (1)
  - Infective pulmonary exacerbation of cystic fibrosis [Recovering/Resolving]

NARRATIVE: CASE EVENT DATE: 20191201
